FAERS Safety Report 14554123 (Version 1)
Quarter: 2018Q1

REPORT INFORMATION
  Report Type: Spontaneous
  Country: US (occurrence: US)
  Receive Date: 20180208
  Receipt Date: 20180208
  Transmission Date: 20180509
  Serious: Yes (Hospitalization)
  Sender: FDA-Public Use
  Company Number: None

PATIENT
  Age: 68 Year
  Sex: Male
  Weight: 127.9 kg

DRUGS (1)
  1. MORPHINE [Suspect]
     Active Substance: MORPHINE
     Indication: PAIN
     Dosage: OTHER
     Route: 048
     Dates: start: 20130123, end: 20150109

REACTIONS (2)
  - Confusional state [None]
  - Respiratory distress [None]

NARRATIVE: CASE EVENT DATE: 20150109
